FAERS Safety Report 22628221 (Version 1)
Quarter: 2023Q2

REPORT INFORMATION
  Report Type: Spontaneous
  Country: PT (occurrence: PT)
  Receive Date: 20230622
  Receipt Date: 20230622
  Transmission Date: 20230722
  Serious: Yes (Other)
  Sender: FDA-Public Use
  Company Number: PT-MACLEODS PHARMACEUTICALS US LTD-MAC2023042023

PATIENT

DRUGS (1)
  1. OLANZAPINE [Suspect]
     Active Substance: OLANZAPINE
     Indication: Antipsychotic therapy
     Dosage: 10 MILLIGRAM, QD, AT NIGHT
     Route: 065

REACTIONS (3)
  - Torticollis [Recovering/Resolving]
  - Akathisia [Recovering/Resolving]
  - Dystonia [Recovering/Resolving]
